FAERS Safety Report 8946922 (Version 1)
Quarter: 2012Q4

REPORT INFORMATION
  Report Type: 
  Country: US (occurrence: US)
  Receive Date: 20121205
  Receipt Date: 20121205
  Transmission Date: 20130627
  Serious: No
  Sender: FDA-Public Use
  Company Number: US-PFIZER INC-2012301065

PATIENT
  Age: 52 Year
  Sex: Female
  Weight: 68 kg

DRUGS (4)
  1. PREMARIN [Suspect]
     Indication: HRT
     Dosage: 0.3 mg, 2x/day
     Route: 048
     Dates: start: 2010, end: 20120504
  2. PREMARIN [Suspect]
     Dosage: 0.3 mg, 2x/day
     Route: 048
     Dates: start: 20121126, end: 201211
  3. PREMARIN [Suspect]
     Dosage: 0.15 mg, 2x/day
     Route: 048
     Dates: start: 201211
  4. ALPRAZOLAM [Concomitant]
     Dosage: UNK

REACTIONS (7)
  - Arthralgia [Not Recovered/Not Resolved]
  - Depression [Not Recovered/Not Resolved]
  - Anxiety [Not Recovered/Not Resolved]
  - Abdominal distension [Not Recovered/Not Resolved]
  - Breast tenderness [Not Recovered/Not Resolved]
  - Hot flush [Not Recovered/Not Resolved]
  - Malaise [Not Recovered/Not Resolved]
